FAERS Safety Report 7775418-X (Version None)
Quarter: 2011Q3

REPORT INFORMATION
  Report Type: 
  Country: None (occurrence: None)
  Receive Date: 20110923
  Receipt Date: 20110919
  Transmission Date: 20111222
  Serious: Yes (Hospitalization)
  Sender: FDA-Public Use
  Company Number: PHHY2011AU83627

PATIENT
  Sex: Female

DRUGS (1)
  1. STALEVO 100 [Suspect]
     Dosage: ONE DOSE EVERY THREE HOURS
     Route: 048

REACTIONS (2)
  - PARKINSON'S DISEASE [None]
  - WRONG TECHNIQUE IN DRUG USAGE PROCESS [None]
